FAERS Safety Report 15375491 (Version 5)
Quarter: 2019Q1

REPORT INFORMATION
  Report Type: Report from Study
  Country: US (occurrence: US)
  Receive Date: 20180912
  Receipt Date: 20190204
  Transmission Date: 20190417
  Serious: Yes (Other)
  Sender: FDA-Public Use
  Company Number: US-PFIZER INC-2018334653

PATIENT
  Age: 57 Year
  Sex: Female

DRUGS (1)
  1. IBRANCE [Suspect]
     Active Substance: PALBOCICLIB
     Indication: BREAST CANCER FEMALE
     Dosage: 125 MG, CYCLIC (21 DAYS ON MEDICATION, 7 DAYS OFF TO MAKE UP A 28 DAY CYCLE)
     Route: 048
     Dates: start: 20180803

REACTIONS (8)
  - Fatigue [Recovering/Resolving]
  - Product dose omission [Unknown]
  - Dyspnoea [Unknown]
  - Decreased appetite [Not Recovered/Not Resolved]
  - Chest pain [Recovered/Resolved]
  - Bone marrow failure [Not Recovered/Not Resolved]
  - Neoplasm progression [Unknown]
  - Stress [Unknown]

NARRATIVE: CASE EVENT DATE: 2018
